FAERS Safety Report 10051594 (Version 1)
Quarter: 2014Q2

REPORT INFORMATION
  Report Type: Report from Study
  Country: DE (occurrence: DE)
  Receive Date: 20140401
  Receipt Date: 20140401
  Transmission Date: 20141212
  Serious: Yes (Other)
  Sender: FDA-Public Use
  Company Number: DE-ABBVIE-14P-062-1217051-00

PATIENT
  Sex: Female

DRUGS (2)
  1. HUMIRA [Suspect]
     Indication: CROHN^S DISEASE
     Route: 058
     Dates: start: 20120711, end: 20120901
  2. HUMIRA [Suspect]
     Route: 058
     Dates: start: 201303, end: 20140113

REACTIONS (2)
  - Placental insufficiency [Unknown]
  - Fall [Unknown]
